FAERS Safety Report 6936330-9 (Version None)
Quarter: 2010Q3

REPORT INFORMATION
  Report Type: 
  Country: None (occurrence: None)
  Receive Date: 20100823
  Receipt Date: 20100813
  Transmission Date: 20110219
  Serious: Yes (Death, Hospitalization)
  Sender: FDA-Public Use
  Company Number: US-PFIZER INC-2010095404

PATIENT
  Sex: Male

DRUGS (4)
  1. IRINOTECAN HCL [Suspect]
     Indication: COLORECTAL CANCER
     Dosage: UNK
     Dates: start: 20100412
  2. E7820 [Suspect]
     Indication: COLORECTAL CANCER
     Dosage: 40 MCG
     Route: 048
     Dates: start: 20100412
  3. AVASTIN [Suspect]
     Indication: COLORECTAL CANCER
     Dosage: UNK
     Dates: start: 20100630
  4. FLUOROURACIL [Concomitant]
     Indication: COLORECTAL CANCER
     Dosage: UNK
     Dates: start: 20100412

REACTIONS (1)
  - SEPTIC SHOCK [None]
